FAERS Safety Report 9483393 (Version 1)
Quarter: 2013Q3

REPORT INFORMATION
  Report Type: Spontaneous
  Country: US (occurrence: US)
  Receive Date: 20130828
  Receipt Date: 20130828
  Transmission Date: 20140515
  Serious: Yes (Death, Other)
  Sender: FDA-Public Use
  Company Number: US-AMGEN-KDL260956

PATIENT
  Age: 91 Year
  Sex: Female

DRUGS (8)
  1. PROCRIT [Suspect]
     Indication: ANAEMIA OF MALIGNANT DISEASE
     Dosage: 10000 IU, QWK
     Route: 065
     Dates: start: 2004
  2. PREDNISONE [Concomitant]
  3. WARFARIN SODIUM [Concomitant]
     Dosage: 2.5 MG, UNK
  4. ALBUTEROL SULFATE [Concomitant]
  5. METOPROLOL TARTRATE [Concomitant]
  6. AMLODIPINE BESILATE [Concomitant]
  7. CYANOCOBALAMIN [Concomitant]
  8. IPRATROPIUM BROMIDE [Concomitant]

REACTIONS (3)
  - Death [Fatal]
  - Pelvic fracture [Unknown]
  - Hip fracture [Unknown]
